FAERS Safety Report 15683246 (Version 1)
Quarter: 2018Q4

REPORT INFORMATION
  Report Type: Spontaneous
  Country: FR (occurrence: FR)
  Receive Date: 20181204
  Receipt Date: 20181204
  Transmission Date: 20190205
  Serious: Yes (Hospitalization)
  Sender: FDA-Public Use
  Company Number: FR-AUROBINDO-AUR-APL-2018-058057

PATIENT
  Age: 66 Year
  Sex: Female
  Weight: 64 kg

DRUGS (6)
  1. SKENAN [Suspect]
     Active Substance: MORPHINE SULFATE
     Indication: PAIN
     Dosage: 30 MG MATIN ET SOIR PUIS 10 MG MATIN ET SOIR
     Route: 048
  2. SIBELIUM /00505202/ [Suspect]
     Active Substance: FLUNARIZINE
     Indication: PAIN
     Dosage: 0-0-1
     Route: 048
     Dates: end: 20180202
  3. ACTISKENAN [Suspect]
     Active Substance: MORPHINE SULFATE
     Indication: PAIN
     Dosage: SI BESOIN
     Route: 048
     Dates: end: 20180202
  4. ALPRAZOLAM. [Suspect]
     Active Substance: ALPRAZOLAM
     Indication: PAIN
     Dosage: SI BESOIN
     Route: 048
     Dates: start: 20180125, end: 20180202
  5. NOCTAMIDE [Suspect]
     Active Substance: LORMETAZEPAM
     Indication: PAIN
     Dosage: 0-0-2
     Route: 048
     Dates: end: 20180202
  6. CYMBALTA [Suspect]
     Active Substance: DULOXETINE HYDROCHLORIDE
     Indication: PAIN
     Dosage: 0-0-1
     Route: 048
     Dates: end: 20180202

REACTIONS (1)
  - Confusional state [Recovered/Resolved]

NARRATIVE: CASE EVENT DATE: 20180202
